FAERS Safety Report 4897424-5 (Version None)
Quarter: 2006Q1

REPORT INFORMATION
  Report Type: 
  Country: None (occurrence: None)
  Receive Date: 20060130
  Receipt Date: 20060130
  Transmission Date: 20060701
  Serious: Yes (Hospitalization)
  Sender: FDA-Public Use
  Company Number: None

PATIENT
  Sex: Male
  Weight: 64.9 kg

DRUGS (7)
  1. PSEUDOEPHEDRINE    60MG [Suspect]
     Indication: RESPIRATORY DISORDER
     Dosage: 60MG  QID  PO
     Route: 048
     Dates: start: 20050902, end: 20051010
  2. RISPERIDONE [Concomitant]
  3. OMEPRAZOLE [Concomitant]
  4. MULTIVITAMIS [Concomitant]
  5. TRIAMTERENE AND HYDROCHLOROTHIAZIDE [Concomitant]
  6. ASPIRIN [Concomitant]
  7. GALANTAMINE HYDROBROMIDE [Concomitant]

REACTIONS (3)
  - CONVULSION [None]
  - SIMILAR REACTION ON PREVIOUS EXPOSURE TO DRUG [None]
  - TREMOR [None]
